FAERS Safety Report 11545311 (Version 3)
Quarter: 2015Q4

REPORT INFORMATION
  Report Type: Report from Study
  Country: US (occurrence: US)
  Receive Date: 20150924
  Receipt Date: 20151019
  Transmission Date: 20160304
  Serious: No
  Sender: FDA-Public Use
  Company Number: PHEH2015US018322

PATIENT
  Sex: Male

DRUGS (1)
  1. COSENTYX [Suspect]
     Active Substance: SECUKINUMAB
     Indication: PRODUCT USED FOR UNKNOWN INDICATION
     Dosage: 300 MG, QW
     Route: 003
     Dates: start: 20150916

REACTIONS (5)
  - Incorrect dose administered [Unknown]
  - Injection site haemorrhage [Unknown]
  - Incorrect route of drug administration [Unknown]
  - Contusion [Unknown]
  - Device malfunction [Unknown]
